FAERS Safety Report 21671935 (Version 1)
Quarter: 2022Q4

REPORT INFORMATION
  Report Type: Spontaneous
  Country: US (occurrence: US)
  Receive Date: 20221202
  Receipt Date: 20221202
  Transmission Date: 20230113
  Serious: Yes (Death)
  Sender: FDA-Public Use
  Company Number: US-002147023-NVSC2022US279421

PATIENT
  Sex: Male

DRUGS (2)
  1. MEKINIST [Suspect]
     Active Substance: TRAMETINIB DIMETHYL SULFOXIDE
     Indication: Lung carcinoma cell type unspecified stage 0
     Dosage: 1 MG, QW (2 TABLETS OF 0.5 MG BY MOUTH IN THE MORNING)
     Route: 048
     Dates: start: 202101
  2. TAFINLAR [Suspect]
     Active Substance: DABRAFENIB MESYLATE
     Indication: Lung carcinoma cell type unspecified stage 0
     Dosage: 150 MG, QW (3 CAPSULES OF 50 MG BY MOUTH TWICE A DAY)
     Route: 048
     Dates: start: 202101

REACTIONS (1)
  - Death [Fatal]
